FAERS Safety Report 8861335 (Version 1)
Quarter: 2012Q4

REPORT INFORMATION
  Report Type: 
  Country: US (occurrence: US)
  Receive Date: 20121026
  Receipt Date: 20121026
  Transmission Date: 20130627
  Serious: No
  Sender: FDA-Public Use
  Company Number: US-PFIZER INC-2012266090

PATIENT
  Age: 59 Year

DRUGS (9)
  1. DILANTIN [Suspect]
     Dosage: UNK
  2. CLINDAMYCIN HCL [Suspect]
     Dosage: UNK
  3. FENTANYL [Suspect]
     Dosage: UNK
  4. TOBRADEX [Suspect]
     Dosage: UNK
  5. WELLBUTRIN [Suspect]
     Dosage: UNK
  6. BENADRYL [Suspect]
     Dosage: UNK
  7. DEPAKOTE [Suspect]
     Dosage: UNK
  8. ULTRAM [Suspect]
     Dosage: UNK
  9. PENICILLIN NOS [Suspect]

REACTIONS (1)
  - Drug hypersensitivity [Unknown]
